FAERS Safety Report 11682105 (Version 3)
Quarter: 2016Q2

REPORT INFORMATION
  Report Type: Spontaneous
  Country: US (occurrence: US)
  Receive Date: 20151029
  Receipt Date: 20160418
  Transmission Date: 20160815
  Serious: Yes (Other)
  Sender: FDA-Public Use
  Company Number: US-BAYER-2015-449212

PATIENT
  Age: 21 Year
  Sex: Female
  Weight: 54.42 kg

DRUGS (4)
  1. AMOXICILLIN. [Concomitant]
     Active Substance: AMOXICILLIN
     Dosage: UNK
     Dates: start: 2011
  2. CODEINE [Concomitant]
     Active Substance: CODEINE
     Dosage: UNK
     Dates: start: 2011, end: 2013
  3. AZITHROMYCIN ANHYDROUS. [Concomitant]
     Active Substance: AZITHROMYCIN ANHYDROUS
     Dosage: UNK
     Dates: start: 2011
  4. MIRENA [Suspect]
     Active Substance: LEVONORGESTREL
     Indication: CONTRACEPTION
     Dosage: 20 MCG/24HR, CONT
     Route: 015
     Dates: start: 20120413, end: 20130402

REACTIONS (16)
  - Device dislocation [None]
  - Maternal exposure before pregnancy [None]
  - Depression [None]
  - Emotional distress [None]
  - Pain [None]
  - Post-traumatic stress disorder [None]
  - Fallopian tube obstruction [None]
  - Dyspareunia [None]
  - Abortion spontaneous [None]
  - Anxiety [None]
  - Injury [None]
  - Embedded device [None]
  - Device difficult to use [None]
  - Infertility female [None]
  - Fallopian tube disorder [None]
  - Coital bleeding [None]

NARRATIVE: CASE EVENT DATE: 201304
